FAERS Safety Report 16157744 (Version 1)
Quarter: 2019Q2

REPORT INFORMATION
  Report Type: Spontaneous
  Country: BE (occurrence: BE)
  Receive Date: 20190404
  Receipt Date: 20190404
  Transmission Date: 20190711
  Serious: Yes (Hospitalization, Other)
  Sender: FDA-Public Use
  Company Number: BE-ALVOGEN-2019-ALVOGEN-099179

PATIENT
  Sex: Female

DRUGS (2)
  1. NIFEDIPINE. [Suspect]
     Active Substance: NIFEDIPINE
     Indication: PREMATURE LABOUR
  2. ATOSIBAN [Suspect]
     Active Substance: ATOSIBAN
     Indication: PREMATURE LABOUR

REACTIONS (4)
  - Acute pulmonary oedema [Unknown]
  - Exposure during pregnancy [Unknown]
  - Hypoxia [Unknown]
  - Caesarean section [Unknown]
